FAERS Safety Report 25182151 (Version 2)
Quarter: 2025Q2

REPORT INFORMATION
  Report Type: Report from Study
  Country: US (occurrence: US)
  Receive Date: 20250410
  Receipt Date: 20250424
  Transmission Date: 20250716
  Serious: Yes (Hospitalization)
  Sender: TAKEDA
  Company Number: US-TAKEDA-2024TUS111911

PATIENT
  Age: 2 Year
  Sex: Male
  Weight: 12 kg

DRUGS (12)
  1. TEDUGLUTIDE [Suspect]
     Active Substance: TEDUGLUTIDE
     Indication: Short-bowel syndrome
     Dosage: 0.06 MILLILITER, QD
  2. TEDUGLUTIDE [Suspect]
     Active Substance: TEDUGLUTIDE
     Indication: Congenital intestinal malformation
     Dosage: 0.07 MILLILITER, QD
  3. TEDUGLUTIDE [Suspect]
     Active Substance: TEDUGLUTIDE
     Dosage: UNK, QD
     Dates: start: 202401
  4. TEDUGLUTIDE [Suspect]
     Active Substance: TEDUGLUTIDE
  5. SIMETHICONE (DIMETHICONE) [Concomitant]
     Active Substance: DIMETHICONE
  6. SULFADIAZINE [Concomitant]
     Active Substance: SULFADIAZINE
  7. LOPERAMIDE [Concomitant]
     Active Substance: LOPERAMIDE
     Indication: Short-bowel syndrome
     Dosage: 1 MILLIGRAM, TID
     Dates: start: 202302
  8. FERROUS SULFATE [Concomitant]
     Active Substance: FERROUS SULFATE
     Indication: Short-bowel syndrome
     Dosage: 325 MILLIGRAM, QD
     Dates: start: 202305
  9. FAMOTIDINE [Concomitant]
     Active Substance: FAMOTIDINE
     Indication: Short-bowel syndrome
     Dosage: UNK, BID
     Dates: start: 202211
  10. TPN [Concomitant]
     Active Substance: AMINO ACIDS\DEXTROSE\ELECTROLYTES NOS\SOYBEAN OIL
  11. Recon [Concomitant]
  12. SULFASALAZINE [Concomitant]
     Active Substance: SULFASALAZINE
     Indication: Ulcer
     Dosage: 180 MILLIGRAM, BID
     Dates: start: 202303

REACTIONS (4)
  - COVID-19 [Recovering/Resolving]
  - Product dose omission issue [Recovered/Resolved]
  - Product use issue [Recovered/Resolved]
  - Product use in unapproved indication [Recovered/Resolved]

NARRATIVE: CASE EVENT DATE: 20250327
